FAERS Safety Report 7263747-8 (Version None)
Quarter: 2011Q1

REPORT INFORMATION
  Report Type: 
  Country: None (occurrence: None)
  Receive Date: 20110130
  Receipt Date: 20101105
  Transmission Date: 20110831
  Serious: No
  Sender: FDA-Public Use
  Company Number: US-ABBOTT-10P-163-0684166-00

PATIENT
  Sex: Female
  Weight: 63.56 kg

DRUGS (13)
  1. FOSAMAX [Concomitant]
     Indication: OSTEOPENIA
  2. PREDNISONE [Concomitant]
     Indication: RHEUMATOID ARTHRITIS
  3. DICYCLOMINE [Concomitant]
     Indication: DYSPEPSIA
  4. HUMIRA [Suspect]
     Indication: RHEUMATOID ARTHRITIS
     Dates: start: 20100313
  5. AMITRIPTYLINE HCL [Concomitant]
     Indication: INSOMNIA
  6. LANTUS [Concomitant]
     Indication: DIABETES MELLITUS
     Route: 050
  7. NOVOLOG [Concomitant]
     Indication: DIABETES MELLITUS
     Route: 050
  8. METHOTREXATE [Concomitant]
     Indication: RHEUMATOID ARTHRITIS
     Dosage: 8 TABLETS IN 1 DAY EVERY WEEK
  9. LISINOPRIL [Concomitant]
     Indication: HYPERTENSION
  10. VITAMIN D [Concomitant]
     Indication: VITAMIN SUPPLEMENTATION
  11. CALCIUM [Concomitant]
     Indication: MINERAL SUPPLEMENTATION
  12. SULINDAC [Concomitant]
     Indication: RHEUMATOID ARTHRITIS
  13. HYDROXYCHLOROQUINE [Concomitant]
     Indication: SWELLING

REACTIONS (2)
  - LOWER RESPIRATORY TRACT INFECTION [None]
  - COUGH [None]
